FAERS Safety Report 5195750-6 (Version None)
Quarter: 2006Q4

REPORT INFORMATION
  Report Type: 
  Country: None (occurrence: None)
  Receive Date: 20061222
  Receipt Date: 20061222
  Transmission Date: 20070319
  Serious: No
  Sender: FDA-Public Use
  Company Number: None

PATIENT
  Age: 45 Year
  Sex: Female

DRUGS (2)
  1. CVS SPECTRAVITE PERFORMANCE [Suspect]
     Dates: start: 20040901, end: 20041230
  2. MULTI-VITAMIN [Concomitant]

REACTIONS (4)
  - ACUTE HEPATIC FAILURE [None]
  - HEPATIC TRAUMA [None]
  - LIVER TRANSPLANT [None]
  - MENTAL STATUS CHANGES [None]
